FAERS Safety Report 5019400-4 (Version None)
Quarter: 2006Q2

REPORT INFORMATION
  Report Type: 
  Country: None (occurrence: None)
  Receive Date: 20060606
  Receipt Date: 20060526
  Transmission Date: 20061013
  Serious: Yes (Other)
  Sender: FDA-Public Use
  Company Number: AU-GILEAD-2006-0009684

PATIENT
  Sex: Female

DRUGS (3)
  1. VIREAD [Suspect]
     Indication: PROPHYLAXIS AGAINST HIV INFECTION
     Dates: start: 20040501
  2. LAMIVUDINE [Concomitant]
     Indication: PROPHYLAXIS AGAINST HIV INFECTION
     Dates: start: 20040501
  3. STAVUDINE [Concomitant]
     Indication: PROPHYLAXIS AGAINST HIV INFECTION
     Dates: start: 20040501

REACTIONS (5)
  - BACK PAIN [None]
  - GASTROINTESTINAL DISORDER [None]
  - INTERVERTEBRAL DISC PROTRUSION [None]
  - PARALYSIS [None]
  - SCIATICA [None]
